FAERS Safety Report 9454664 (Version 1)
Quarter: 2013Q3

REPORT INFORMATION
  Report Type: Report from Study
  Country: US (occurrence: US)
  Receive Date: 20130812
  Receipt Date: 20130812
  Transmission Date: 20140515
  Serious: Yes (Other)
  Sender: FDA-Public Use
  Company Number: US-ACTELION-A-NJ2013-85380

PATIENT
  Age: 54 Year
  Sex: Female

DRUGS (8)
  1. TRACLEER [Suspect]
     Indication: PULMONARY ARTERIAL HYPERTENSION
     Dosage: 125 MG, BID
     Route: 048
  2. SILDENAFIL [Concomitant]
  3. ASA [Concomitant]
  4. FUROSEMIDE [Concomitant]
  5. CRESTOR [Concomitant]
  6. TYLENOL [Concomitant]
  7. NEXIUM [Concomitant]
  8. PREMARIN [Concomitant]

REACTIONS (9)
  - Hepatic failure [Recovered/Resolved]
  - Liver function test abnormal [Recovered/Resolved]
  - Jaundice [Recovered/Resolved]
  - Nausea [Recovered/Resolved]
  - Vomiting [Recovered/Resolved]
  - Diarrhoea [Recovered/Resolved]
  - Fatigue [Unknown]
  - Weight decreased [Unknown]
  - Dyspnoea exertional [Not Recovered/Not Resolved]
